FAERS Safety Report 4764017-X (Version None)
Quarter: 2005Q3

REPORT INFORMATION
  Report Type: 
  Country: None (occurrence: None)
  Receive Date: 20050908
  Receipt Date: 20050830
  Transmission Date: 20060218
  Serious: Yes (Life-Threatening, Hospitalization)
  Sender: FDA-Public Use
  Company Number: GB-MERCK-0508GBR00168

PATIENT
  Age: 73 Year
  Sex: Female

DRUGS (8)
  1. COZAAR [Suspect]
     Route: 048
  2. FUROSEMIDE [Suspect]
     Route: 065
  3. DICLOFENAC [Suspect]
     Route: 065
  4. OMEPRAZOLE [Concomitant]
     Route: 065
  5. AMINOPHYLLINE [Concomitant]
     Route: 065
  6. BUDESONIDE AND FORMOTEROL FUMARATE [Concomitant]
     Route: 065
  7. ALBUTEROL SULFATE AND IPRATROPIUM BROMIDE [Concomitant]
     Route: 065
  8. TRAMADOL HYDROCHLORIDE [Concomitant]
     Route: 065

REACTIONS (4)
  - CONDITION AGGRAVATED [None]
  - GLASGOW COMA SCALE ABNORMAL [None]
  - METABOLIC ACIDOSIS [None]
  - RENAL FAILURE [None]
